FAERS Safety Report 4439550-0 (Version None)
Quarter: 2004Q3

REPORT INFORMATION
  Report Type: 
  Country: None (occurrence: None)
  Receive Date: 20040830
  Receipt Date: 20040813
  Transmission Date: 20050211
  Serious: Yes (Life-Threatening, Hospitalization)
  Sender: FDA-Public Use
  Company Number: 24955

PATIENT
  Sex: Female

DRUGS (1)
  1. THEOPHYL-SR [Suspect]
     Route: 048

REACTIONS (3)
  - DRUG LEVEL FLUCTUATING [None]
  - GASTROINTESTINAL DISORDER [None]
  - OVERDOSE [None]
